FAERS Safety Report 7884649-X (Version None)
Quarter: 2011Q4

REPORT INFORMATION
  Report Type: 
  Country: None (occurrence: None)
  Receive Date: 20111102
  Receipt Date: 20111026
  Transmission Date: 20120403
  Serious: Yes (Hospitalization)
  Sender: FDA-Public Use
  Company Number: AU-MERCK-1110USA03960

PATIENT
  Age: 68 Year
  Sex: Male

DRUGS (2)
  1. SILDENAFIL CITRATE [Suspect]
     Route: 065
  2. ZOCOR [Suspect]
     Indication: METABOLIC DISORDER
     Route: 048

REACTIONS (2)
  - ANGINA UNSTABLE [None]
  - HYPERTENSION [None]
